FAERS Safety Report 10599444 (Version 5)
Quarter: 2017Q4

REPORT INFORMATION
  Report Type: Spontaneous
  Country: US (occurrence: US)
  Receive Date: 20141121
  Receipt Date: 20171129
  Transmission Date: 20180320
  Serious: Yes (Other)
  Sender: FDA-Public Use
  Company Number: US-PFIZER INC-2014319617

PATIENT
  Age: 59 Year
  Sex: Female
  Weight: 59 kg

DRUGS (6)
  1. EFFEXOR [Concomitant]
     Active Substance: VENLAFAXINE HYDROCHLORIDE
     Dosage: 150 MG, UNK
  2. REVATIO [Suspect]
     Active Substance: SILDENAFIL CITRATE
     Dosage: UNK
  3. COUMADIN [Concomitant]
     Active Substance: WARFARIN SODIUM
     Indication: ANTICOAGULANT THERAPY
     Dosage: UNK
  4. ATORVASTATIN CALCIUM. [Concomitant]
     Active Substance: ATORVASTATIN CALCIUM
     Dosage: 80 MG, UNK
  5. LETAIRIS [Concomitant]
     Active Substance: AMBRISENTAN
     Indication: LUNG DISORDER
     Dosage: 10 MG, 1X/DAY
     Dates: start: 2009
  6. REVATIO [Suspect]
     Active Substance: SILDENAFIL CITRATE
     Indication: PULMONARY HYPERTENSION
     Dosage: 20 MG, 3X/DAY
     Route: 048
     Dates: start: 2009

REACTIONS (10)
  - Malaise [Recovering/Resolving]
  - Asthenia [Unknown]
  - Respiratory tract infection [Unknown]
  - Dizziness [Recovered/Resolved]
  - Nasopharyngitis [Unknown]
  - Impaired work ability [Unknown]
  - Feeling abnormal [Unknown]
  - Sinusitis [Unknown]
  - Cognitive disorder [Unknown]
  - Aphonia [Unknown]

NARRATIVE: CASE EVENT DATE: 201502
